FAERS Safety Report 11579780 (Version 8)
Quarter: 2016Q1

REPORT INFORMATION
  Report Type: Spontaneous
  Country: US (occurrence: US)
  Receive Date: 20150930
  Receipt Date: 20160118
  Transmission Date: 20160525
  Serious: Yes (Death, Hospitalization)
  Sender: FDA-Public Use
  Company Number: US-ACTELION PHARMACEUTICALS US, INC.-A-NJ2015-124400

PATIENT
  Age: 72 Year
  Sex: Female

DRUGS (3)
  1. VELETRI [Suspect]
     Active Substance: EPOPROSTENOL
     Indication: PULMONARY HYPERTENSION
     Dosage: 10 NG/KG, PER MIN
     Route: 042
     Dates: start: 20150911, end: 20151208
  2. COUMADIN [Concomitant]
     Active Substance: WARFARIN SODIUM
  3. LASIX [Concomitant]
     Active Substance: FUROSEMIDE

REACTIONS (12)
  - Hypotension [Unknown]
  - Pollakiuria [Unknown]
  - Pneumonia [Unknown]
  - Syncope [Unknown]
  - Pulmonary embolism [Fatal]
  - General physical health deterioration [Unknown]
  - Weight decreased [Unknown]
  - Pulmonary hypertension [Fatal]
  - Pulmonary hypertension [Unknown]
  - Rash pruritic [Unknown]
  - Acute respiratory failure [Unknown]
  - Disease progression [Unknown]
